FAERS Safety Report 4294099-3 (Version None)
Quarter: 2004Q1

REPORT INFORMATION
  Report Type: 
  Country: None (occurrence: None)
  Receive Date: 20040212
  Receipt Date: 20040212
  Transmission Date: 20041129
  Serious: No
  Sender: FDA-Public Use
  Company Number: None

PATIENT
  Age: 37 Year
  Sex: Male
  Weight: 86.1834 kg

DRUGS (3)
  1. ZETIA [Suspect]
     Dosage: 10MG QD ORAL
     Route: 048
     Dates: start: 20031210, end: 20031220
  2. ATENOLOL [Concomitant]
  3. ZOCOR [Concomitant]

REACTIONS (2)
  - HAEMORRHOIDAL HAEMORRHAGE [None]
  - HAEMORRHOIDS [None]
